FAERS Safety Report 8762869 (Version 2)
Quarter: 2012Q4

REPORT INFORMATION
  Report Type: 
  Country: US (occurrence: US)
  Receive Date: 20120830
  Receipt Date: 20120910
  Transmission Date: 20130627
  Serious: No
  Sender: FDA-Public Use
  Company Number: US-PFIZER INC-2012209948

PATIENT
  Age: 51 Year
  Sex: Female
  Weight: 69.84 kg

DRUGS (1)
  1. PRISTIQ [Suspect]
     Dosage: 50 mg, 1x/day
     Dates: start: 20100902, end: 20120627

REACTIONS (1)
  - Dizziness [Recovered/Resolved]
